FAERS Safety Report 5536781-3 (Version None)
Quarter: 2007Q4

REPORT INFORMATION
  Report Type: 
  Country: None (occurrence: None)
  Receive Date: 20071206
  Receipt Date: 20070413
  Transmission Date: 20080405
  Serious: Yes (Other)
  Sender: FDA-Public Use
  Company Number: US-AMGEN-US196822

PATIENT
  Age: 43 Year
  Sex: Female
  Weight: 56.3 kg

DRUGS (4)
  1. ENBREL [Suspect]
     Indication: RHEUMATOID ARTHRITIS
     Route: 058
     Dates: start: 20041001, end: 20060914
  2. METHOTREXATE [Suspect]
     Route: 065
     Dates: start: 20030806, end: 20060914
  3. PLAQUENIL [Concomitant]
     Route: 065
     Dates: start: 20030910, end: 20050110
  4. SULFASALAZINE [Concomitant]
     Route: 065
     Dates: start: 20031106, end: 20041101

REACTIONS (3)
  - HODGKIN'S DISEASE [None]
  - HYPOAESTHESIA [None]
  - PARAESTHESIA [None]
